FAERS Safety Report 8823747 (Version 2)
Quarter: 2013Q3

REPORT INFORMATION
  Report Type: Report from Study
  Country: US (occurrence: US)
  Receive Date: 20121003
  Receipt Date: 20130716
  Transmission Date: 20140515
  Serious: Yes (Death, Hospitalization)
  Sender: FDA-Public Use
  Company Number: US-CELGENEUS-163-21880-12091591

PATIENT
  Age: 74 Year
  Sex: Male
  Weight: 87.17 kg

DRUGS (1)
  1. REVLIMID [Suspect]
     Indication: MYELODYSPLASTIC SYNDROME
     Dosage: 50 MILLIGRAM
     Route: 048
     Dates: start: 20120629, end: 20120911

REACTIONS (3)
  - Acute myeloid leukaemia [Fatal]
  - Pneumonia [Fatal]
  - Epistaxis [Not Recovered/Not Resolved]
